FAERS Safety Report 5579797-3 (Version None)
Quarter: 2007Q4

REPORT INFORMATION
  Report Type: 
  Country: None (occurrence: None)
  Receive Date: 20071130
  Receipt Date: 20070630
  Transmission Date: 20080405
  Serious: No
  Sender: FDA-Public Use
  Company Number: US200707002726

PATIENT
  Age: 58 Year
  Sex: Male
  Weight: 113.4 kg

DRUGS (10)
  1. BYETTA [Suspect]
     Indication: TYPE 2 DIABETES MELLITUS
     Dosage: 5 UG, 2/D, SUBCUTANEOUS ; 10 UG, 2/D, SUBCUTANEOUS
     Route: 058
     Dates: start: 20050501, end: 20050901
  2. BYETTA [Suspect]
     Indication: TYPE 2 DIABETES MELLITUS
     Dosage: 5 UG, 2/D, SUBCUTANEOUS ; 10 UG, 2/D, SUBCUTANEOUS
     Route: 058
     Dates: start: 20050901
  3. ASPIRIN [Concomitant]
  4. METFORMIN HCL [Concomitant]
  5. AMARYL [Concomitant]
  6. LOTREL [Concomitant]
  7. AVALIDE [Concomitant]
  8. NIASPAN [Concomitant]
  9. DOXAZOSIN MESYLATE [Concomitant]
  10. CELEBREX [Concomitant]

REACTIONS (6)
  - BLOOD GLUCOSE DECREASED [None]
  - BLOOD GLUCOSE INCREASED [None]
  - HYPERHIDROSIS [None]
  - INJECTION SITE BRUISING [None]
  - INJECTION SITE HAEMORRHAGE [None]
  - TREMOR [None]
